FAERS Safety Report 4645445-X (Version None)
Quarter: 2005Q2

REPORT INFORMATION
  Report Type: 
  Country: None (occurrence: None)
  Receive Date: 20050426
  Receipt Date: 20050224
  Transmission Date: 20051028
  Serious: Yes (Hospitalization, Disabling)
  Sender: FDA-Public Use
  Company Number: US-MERCK-0502USA03308

PATIENT
  Age: 64 Year
  Sex: Male
  Weight: 109 kg

DRUGS (9)
  1. SINGULAIR [Suspect]
     Indication: ASTHMA
     Route: 048
     Dates: start: 20050218, end: 20050223
  2. SINGULAIR [Suspect]
     Indication: CHRONIC OBSTRUCTIVE PULMONARY DISEASE
     Route: 048
     Dates: start: 20050218, end: 20050223
  3. FLEXERIL [Suspect]
     Indication: PAIN
     Route: 048
     Dates: start: 20050218, end: 20050221
  4. ALBUTEROL [Concomitant]
     Route: 055
  5. IPRATROPIUM BROMIDE [Concomitant]
     Route: 065
  6. CARBAMAZEPINE [Concomitant]
     Indication: PAIN
     Route: 048
     Dates: start: 20050218
  7. VENLAFAXINE HYDROCHLORIDE [Concomitant]
     Route: 048
  8. GABAPENTIN [Concomitant]
     Indication: PAIN
     Route: 048
     Dates: start: 20050218, end: 20050201
  9. MORPHINE [Concomitant]
     Route: 051
     Dates: start: 20050201, end: 20050201

REACTIONS (10)
  - ANTICHOLINERGIC SYNDROME [None]
  - COMMUNICATION DISORDER [None]
  - CONFUSIONAL STATE [None]
  - DELIRIUM [None]
  - DRUG WITHDRAWAL SYNDROME [None]
  - HALLUCINATION [None]
  - MENTAL STATUS CHANGES [None]
  - OXYGEN SATURATION DECREASED [None]
  - PARANOIA [None]
  - SOMNOLENCE [None]
